FAERS Safety Report 5383074-3 (Version None)
Quarter: 2007Q3

REPORT INFORMATION
  Report Type: 
  Country: None (occurrence: None)
  Receive Date: 20070710
  Receipt Date: 20070702
  Transmission Date: 20080115
  Serious: Yes (Hospitalization)
  Sender: FDA-Public Use
  Company Number: PHBS2007JP10645

PATIENT
  Age: 76 Year
  Sex: Male

DRUGS (4)
  1. TEGRETOL [Suspect]
     Indication: HERPES ZOSTER
     Route: 048
  2. MEXILETINE HYDROCHLORIDE [Concomitant]
  3. VERAPAMIL HYDROCHLORIDE [Concomitant]
     Indication: ARRHYTHMIA
  4. WARFARIN SODIUM [Concomitant]
     Indication: ARRHYTHMIA

REACTIONS (3)
  - CARDIAC FAILURE CHRONIC [None]
  - HEPATIC FUNCTION ABNORMAL [None]
  - TACHYARRHYTHMIA [None]
